FAERS Safety Report 6227165-3 (Version None)
Quarter: 2009Q2

REPORT INFORMATION
  Report Type: 
  Country: None (occurrence: None)
  Receive Date: 20090612
  Receipt Date: 20090526
  Transmission Date: 20091009
  Serious: No
  Sender: FDA-Public Use
  Company Number: US-ABBOTT-09P-163-0576023-00

PATIENT
  Sex: Female
  Weight: 81.72 kg

DRUGS (3)
  1. HUMIRA [Suspect]
     Indication: CROHN'S DISEASE
     Route: 058
     Dates: start: 20090101
  2. CALCIUM [Concomitant]
     Indication: DRUG USE FOR UNKNOWN INDICATION
  3. MULTI-VITAMINS [Concomitant]
     Indication: DRUG USE FOR UNKNOWN INDICATION

REACTIONS (6)
  - ALOPECIA [None]
  - HAIR TEXTURE ABNORMAL [None]
  - LABORATORY TEST ABNORMAL [None]
  - MUSCLE SPASMS [None]
  - THYROID DISORDER [None]
  - WEIGHT INCREASED [None]
